FAERS Safety Report 23925177 (Version 1)
Quarter: 2024Q2

REPORT INFORMATION
  Report Type: Spontaneous
  Country: CN (occurrence: CN)
  Receive Date: 20240531
  Receipt Date: 20240531
  Transmission Date: 20240715
  Serious: Yes (Life-Threatening, Other)
  Sender: FDA-Public Use
  Company Number: CN-BAYER-2024A075260

PATIENT
  Age: 66 Year
  Sex: Male
  Weight: 75 kg

DRUGS (5)
  1. KOVALTRY [Suspect]
     Active Substance: ANTIHEMOPHILIC FACTOR, HUMAN RECOMBINANT
     Indication: Immunomodulatory therapy
     Dosage: 200 MG, QD
     Route: 041
     Dates: start: 20240312, end: 20240409
  2. BEVACIZUMAB [Suspect]
     Active Substance: BEVACIZUMAB
     Indication: Hepatic cancer
     Dosage: 400 MG, ONCE
     Route: 041
     Dates: start: 20240312, end: 20240312
  3. BEVACIZUMAB [Suspect]
     Active Substance: BEVACIZUMAB
     Indication: Hepatic cancer
     Dosage: 400 MG, ONCE
     Route: 041
     Dates: start: 20240409, end: 20240409
  4. SINTILIMAB [Suspect]
     Active Substance: SINTILIMAB
     Indication: Hepatic cancer
     Dosage: 200 MG, ONCE
     Dates: start: 20240312, end: 20240312
  5. SINTILIMAB [Suspect]
     Active Substance: SINTILIMAB
     Indication: Hepatic cancer
     Dosage: 200 MG, ONCE
     Dates: start: 20240409, end: 20240409

REACTIONS (4)
  - Autoimmune lung disease [Recovered/Resolved with Sequelae]
  - Respiratory failure [None]
  - Chest discomfort [None]
  - Off label use [None]

NARRATIVE: CASE EVENT DATE: 20240101
